FAERS Safety Report 9201282 (Version 1)
Quarter: 2013Q2

REPORT INFORMATION
  Report Type: Spontaneous
  Country: US (occurrence: None)
  Receive Date: 20130401
  Receipt Date: 20130401
  Transmission Date: 20140414
  Serious: No
  Sender: FDA-Public Use
  Company Number: None

PATIENT
  Age: 82 Year
  Sex: Female
  Weight: 81.65 kg

DRUGS (2)
  1. METHYLPREDNISOLONE ACETATE [Suspect]
     Indication: SPINAL COLUMN STENOSIS
     Dosage: 40MG PRN EPIDURAL
     Route: 008
     Dates: start: 20120816, end: 20120816
  2. METHYLPREDNISOLONE ACETATE [Suspect]
     Indication: OSTEOARTHRITIS
     Dosage: 40MG PRN EPIDURAL
     Route: 008
     Dates: start: 20120816, end: 20120816

REACTIONS (4)
  - Back pain [None]
  - Pain [None]
  - Pain in extremity [None]
  - Headache [None]
